FAERS Safety Report 4475939-1 (Version None)
Quarter: 2004Q3

REPORT INFORMATION
  Report Type: 
  Country: None (occurrence: None)
  Receive Date: 20040923
  Receipt Date: 20040709
  Transmission Date: 20050211
  Serious: No
  Sender: FDA-Public Use
  Company Number: USA040772341

PATIENT
  Age: 67 Year
  Sex: Female

DRUGS (7)
  1. FORTEO [Suspect]
     Indication: OSTEOPOROSIS
     Dates: start: 20040515
  2. ZELNORM [Concomitant]
  3. CALCIUM [Concomitant]
  4. MILK OF MAGNESIA TAB [Concomitant]
  5. NEURONTIN [Concomitant]
  6. FLUOXETINE [Concomitant]
  7. STOOL SOFTENER (DOCUSATE SODIUM) [Concomitant]

REACTIONS (2)
  - ALOPECIA [None]
  - CONSTIPATION [None]
